FAERS Safety Report 8522540-6 (Version None)
Quarter: 2012Q3

REPORT INFORMATION
  Report Type: 
  Country: None (occurrence: None)
  Receive Date: 20120719
  Receipt Date: 20120713
  Transmission Date: 20120928
  Serious: No
  Sender: FDA-Public Use
  Company Number: US-PFIZER INC-2012127330

PATIENT
  Sex: Female
  Weight: 79 kg

DRUGS (5)
  1. ATORVASTATIN CALCIUM [Suspect]
     Indication: BLOOD CHOLESTEROL INCREASED
     Dosage: 40 MG, DAILY
     Route: 048
     Dates: start: 20120401, end: 20120501
  2. ATORVASTATIN CALCIUM [Suspect]
     Indication: HYPERLIPIDAEMIA
  3. LIPITOR [Suspect]
     Indication: BLOOD CHOLESTEROL INCREASED
     Dosage: 40 MG, DAILY
     Dates: start: 20120101
  4. LIPITOR [Suspect]
     Dosage: 40 MG, DAILY
     Dates: start: 20120505
  5. DIOVAN HCT [Concomitant]
     Indication: HYPERTENSION
     Dosage: 160/12.5MG, DAILY
     Route: 048
     Dates: start: 20080501

REACTIONS (3)
  - ABDOMINAL DISCOMFORT [None]
  - FLATULENCE [None]
  - PRODUCT SUBSTITUTION ISSUE [None]
